FAERS Safety Report 9984377 (Version 1)
Quarter: 2014Q1

REPORT INFORMATION
  Report Type: Report from Study
  Country: US (occurrence: US)
  Receive Date: 20140307
  Receipt Date: 20140307
  Transmission Date: 20141002
  Serious: No
  Sender: FDA-Public Use
  Company Number: US-ABBVIE-13P-163-1182940-00

PATIENT
  Age: 50 Year
  Sex: Female

DRUGS (3)
  1. HUMIRA [Suspect]
     Indication: RHEUMATOID ARTHRITIS
     Dates: start: 20131213
  2. PERCOCET [Concomitant]
     Indication: ARTHRALGIA
     Dosage: 5/325 MG
  3. TRAMADOL [Concomitant]
     Indication: ARTHRALGIA

REACTIONS (1)
  - Injection site pain [Recovered/Resolved]
